FAERS Safety Report 5598378-9 (Version None)
Quarter: 2008Q1

REPORT INFORMATION
  Report Type: 
  Country: None (occurrence: None)
  Receive Date: 20080122
  Receipt Date: 20080108
  Transmission Date: 20080703
  Serious: Yes (Hospitalization)
  Sender: FDA-Public Use
  Company Number: AU-AMGEN-US252704

PATIENT
  Sex: Male

DRUGS (13)
  1. PANITUMUMAB [Suspect]
     Indication: COLORECTAL CANCER
     Route: 042
     Dates: start: 20070919, end: 20071114
  2. IRINOTECAN HCL [Suspect]
     Route: 042
     Dates: start: 20070919
  3. LEUCOVORIN [Suspect]
     Route: 042
     Dates: start: 20070919
  4. FLUOROURACIL [Suspect]
     Route: 042
     Dates: start: 20070919
  5. TEMAZEPAM [Concomitant]
     Route: 065
  6. OSTEOVIT [Concomitant]
     Route: 065
  7. CALTRATE [Concomitant]
     Route: 065
  8. ALLOPURINOL [Concomitant]
     Route: 065
  9. COVERSYL [Concomitant]
     Route: 065
  10. LEVOTHYROXINE SODIUM [Concomitant]
     Route: 065
  11. HYDROCORTISONE [Concomitant]
     Route: 061
  12. LOPERAMIDE HYDROCHLORIDE [Concomitant]
     Route: 065
  13. PRAVASTATIN [Concomitant]
     Route: 065

REACTIONS (1)
  - PULMONARY EMBOLISM [None]
